FAERS Safety Report 12256387 (Version 11)
Quarter: 2018Q2

REPORT INFORMATION
  Report Type: Report from Study
  Country: US (occurrence: US)
  Receive Date: 20160412
  Receipt Date: 20180606
  Transmission Date: 20180711
  Serious: Yes (Hospitalization, Other)
  Sender: FDA-Public Use
  Company Number: PHHY2016US046111

PATIENT
  Age: 20 Year
  Sex: Male
  Weight: 59.42 kg

DRUGS (35)
  1. TOBI PODHALER [Suspect]
     Active Substance: TOBRAMYCIN
     Indication: PSEUDOMONAS INFECTION
     Dosage: 112 MG, BID (CYCLES 28 DAYS ON/OFF)
     Route: 055
     Dates: start: 20140101
  2. CAYSTON [Suspect]
     Active Substance: AZTREONAM
     Dosage: 75 OT, TID
     Route: 065
     Dates: start: 20160430, end: 20160530
  3. CAYSTON [Suspect]
     Active Substance: AZTREONAM
     Dosage: UNK
     Route: 065
     Dates: end: 20171211
  4. LUMACAFTOR [Concomitant]
     Active Substance: LUMACAFTOR
     Indication: CYSTIC FIBROSIS
     Dosage: 1 DF (200-125 MG),(TAKE 2 TABLETS BY MOUTH) DAILY
     Route: 048
     Dates: start: 20150101
  5. LANTUS [Concomitant]
     Active Substance: INSULIN GLARGINE
     Indication: DIABETES MELLITUS
     Dosage: 32 U, QD (AT BEDTIME)
     Route: 058
     Dates: start: 20140101
  6. LANTUS [Concomitant]
     Active Substance: INSULIN GLARGINE
     Dosage: 36 U, QD
     Route: 058
  7. HYPERTONIC SALINE SOLUTION [Concomitant]
     Active Substance: SODIUM CHLORIDE
     Indication: OBSTRUCTIVE AIRWAYS DISORDER
     Dosage: 2 DF, QD (NEBULIZER)
     Route: 065
     Dates: start: 20030101
  8. BOOST [Concomitant]
     Active Substance: DIETARY SUPPLEMENT
     Indication: MALNUTRITION
     Dosage: 1 DF, BID
     Route: 048
     Dates: start: 20160912
  9. TOBI PODHALER [Suspect]
     Active Substance: TOBRAMYCIN
     Dosage: 112 OT, BID
     Route: 055
     Dates: start: 20160229, end: 20160328
  10. TOBI PODHALER [Suspect]
     Active Substance: TOBRAMYCIN
     Dosage: 112 OT, BID
     Route: 055
     Dates: start: 20160630, end: 20160829
  11. CAYSTON [Suspect]
     Active Substance: AZTREONAM
     Dosage: 75 OT, TID
     Route: 065
     Dates: start: 20160329, end: 20160404
  12. PHYTONADIONE. [Concomitant]
     Active Substance: PHYTONADIONE
     Indication: PRODUCT USED FOR UNKNOWN INDICATION
     Dosage: 2 DF, QD
     Route: 048
  13. TOBI PODHALER [Suspect]
     Active Substance: TOBRAMYCIN
     Indication: CYSTIC FIBROSIS
     Dosage: 112 MG, BID
     Route: 055
  14. DORNASE ALFA. [Concomitant]
     Active Substance: DORNASE ALFA
     Indication: PRODUCT USED FOR UNKNOWN INDICATION
     Dosage: 2.5 ML, QD
     Route: 055
  15. IBUPROFEN. [Concomitant]
     Active Substance: IBUPROFEN
     Indication: PAIN
     Route: 065
  16. LANTUS [Concomitant]
     Active Substance: INSULIN GLARGINE
     Dosage: 30 U QD ,(UNDER THE SKIN AT BED TIME)
     Route: 058
  17. BOOST [Concomitant]
     Active Substance: DIETARY SUPPLEMENT
     Indication: SUPPLEMENTATION THERAPY
  18. TOBI PODHALER [Suspect]
     Active Substance: TOBRAMYCIN
     Dosage: 112 OT, BID
     Route: 055
     Dates: start: 20160531, end: 20160607
  19. FLONASE [Concomitant]
     Active Substance: FLUTICASONE PROPIONATE
     Dosage: 2 DF, QD (2 SPRAYS INTO BOTH NOSTRILS DAILY)
     Route: 045
     Dates: start: 20151016
  20. CREON [Concomitant]
     Active Substance: PANCRELIPASE AMYLASE\PANCRELIPASE LIPASE\PANCRELIPASE PROTEASE
     Indication: PANCREATIC FAILURE
  21. ALBUTEROL HFA [Concomitant]
     Active Substance: ALBUTEROL SULFATE
     Indication: OBSTRUCTIVE AIRWAYS DISORDER
     Dosage: 2 DF , BID
     Route: 055
  22. LORATADINE. [Concomitant]
     Active Substance: LORATADINE
     Indication: SEASONAL ALLERGY
     Dosage: 1 DF, QD
     Route: 048
     Dates: start: 20151125
  23. FLONASE [Concomitant]
     Active Substance: FLUTICASONE PROPIONATE
     Dosage: 1 OT, PRN (DAILY)
     Route: 065
  24. TOBI PODHALER [Suspect]
     Active Substance: TOBRAMYCIN
     Dosage: 112 MG, BID (CYCLES 28 DAYS ON/OFF)
     Route: 055
     Dates: start: 20160829, end: 20160912
  25. LANTUS [Concomitant]
     Active Substance: INSULIN GLARGINE
     Dosage: 30 OT, QD
     Route: 058
  26. INSULIN [Concomitant]
     Active Substance: INSULIN NOS
     Indication: DIABETES MELLITUS
     Dosage: 4 DF(31 G ,8MM,ML), QD
     Route: 058
     Dates: start: 20140101
  27. FLONASE [Concomitant]
     Active Substance: FLUTICASONE PROPIONATE
     Indication: CHRONIC SINUSITIS
     Dosage: 2 DF, BID
     Route: 055
     Dates: start: 20151006
  28. CREON [Concomitant]
     Active Substance: PANCRELIPASE AMYLASE\PANCRELIPASE LIPASE\PANCRELIPASE PROTEASE
     Indication: PANCREATIC ENZYMES
     Dosage: 40 DF, QD (24, 8 CAPS WITH MEALS, 4 WITH SNACKS)
     Route: 065
     Dates: start: 20090101
  29. FLOVENT [Concomitant]
     Active Substance: FLUTICASONE PROPIONATE
     Indication: ASTHMA
     Dosage: 2 DF, BID
     Route: 055
     Dates: start: 20000101
  30. HUMALOG [Concomitant]
     Active Substance: INSULIN LISPRO
     Indication: DIABETES MELLITUS
     Dosage: (SLIDING SCALE WITH MEALS 1:6 RATIO)
     Route: 065
  31. VITAMIN K [Concomitant]
     Active Substance: PHYTONADIONE
     Indication: VITAMIN SUPPLEMENTATION
     Dosage: 10 MG, QD
     Route: 048
  32. CAYSTON [Suspect]
     Active Substance: AZTREONAM
     Indication: PSEUDOMONAS INFECTION
     Dosage: UNK
     Route: 065
     Dates: start: 20150101
  33. BOOST [Concomitant]
     Active Substance: DIETARY SUPPLEMENT
     Indication: NUTRITIONAL SUPPLEMENTATION
     Dosage: HAVING TROUBLE TO GETTING IT, SO PLANS TO START GETTING SUPPLEMENTS FROM GNC
     Route: 065
  34. NOVOLOG [Concomitant]
     Active Substance: INSULIN ASPART
     Indication: DIABETES MELLITUS
     Dosage: UNK
     Route: 065
     Dates: start: 20140101
  35. VITAMIN K [Concomitant]
     Active Substance: PHYTONADIONE
     Indication: NUTRITIONAL SUPPLEMENTATION

REACTIONS (42)
  - Infective pulmonary exacerbation of cystic fibrosis [Recovered/Resolved]
  - Condition aggravated [Recovered/Resolved]
  - Wheezing [Recovered/Resolved]
  - Cough [Recovering/Resolving]
  - Chest pain [Recovered/Resolved]
  - Distal intestinal obstruction syndrome [Recovered/Resolved]
  - Bronchiectasis [Unknown]
  - Dyspnoea [Recovering/Resolving]
  - Increased viscosity of bronchial secretion [Recovering/Resolving]
  - Cystic fibrosis related diabetes [Unknown]
  - Insomnia [Unknown]
  - Dyspnoea [Recovered/Resolved]
  - Chest discomfort [Recovered/Resolved]
  - Night sweats [Unknown]
  - Pyrexia [Recovering/Resolving]
  - Pancreatic failure [Unknown]
  - Weight decreased [Recovering/Resolving]
  - Chest discomfort [Unknown]
  - Chills [Unknown]
  - Abdominal pain [Unknown]
  - Sputum discoloured [Recovering/Resolving]
  - Infective exacerbation of bronchiectasis [Unknown]
  - Gastrooesophageal reflux disease [Unknown]
  - Pseudomonas infection [Unknown]
  - Cystic fibrosis [Unknown]
  - Productive cough [Recovering/Resolving]
  - Chest pain [Recovering/Resolving]
  - Sputum increased [Not Recovered/Not Resolved]
  - Malnutrition [Recovering/Resolving]
  - Wheezing [Not Recovered/Not Resolved]
  - Infective pulmonary exacerbation of cystic fibrosis [Recovered/Resolved]
  - Blood pressure decreased [Unknown]
  - Decreased appetite [Recovering/Resolving]
  - Clubbing [Unknown]
  - Condition aggravated [Recovered/Resolved]
  - Infective pulmonary exacerbation of cystic fibrosis [Recovered/Resolved]
  - Infective pulmonary exacerbation of cystic fibrosis [Recovered/Resolved]
  - Hyperglycaemia [Recovering/Resolving]
  - Diarrhoea [Unknown]
  - Asthma [Recovering/Resolving]
  - Chronic sinusitis [Recovering/Resolving]
  - Malaise [Unknown]

NARRATIVE: CASE EVENT DATE: 20160314
